FAERS Safety Report 15367322 (Version 1)
Quarter: 2018Q3

REPORT INFORMATION
  Report Type: Spontaneous
  Country: US (occurrence: US)
  Receive Date: 20180910
  Receipt Date: 20180910
  Transmission Date: 20181010
  Serious: No
  Sender: FDA-Public Use
  Company Number: US-009507513-1808USA013668

PATIENT
  Sex: Female

DRUGS (2)
  1. NEXPLANON [Suspect]
     Active Substance: ETONOGESTREL
     Dosage: 68 MG, (1 ROD EVERY 3 YEARS)
     Route: 059
     Dates: start: 20180830
  2. NEXPLANON [Suspect]
     Active Substance: ETONOGESTREL
     Dosage: 68 MG, (1 ROD EVERY 3 YEARS)
     Route: 059
     Dates: end: 20180830

REACTIONS (2)
  - No adverse event [Unknown]
  - Device breakage [Recovered/Resolved]
